FAERS Safety Report 14626560 (Version 2)
Quarter: 2021Q3

REPORT INFORMATION
  Report Type: Spontaneous
  Country: US (occurrence: US)
  Receive Date: 20180312
  Receipt Date: 20210916
  Transmission Date: 20211014
  Serious: Yes (Disabling)
  Sender: FDA-Public Use
  Company Number: US-TEVA-2018-US-869277

PATIENT
  Age: 72 Year
  Sex: Female

DRUGS (2)
  1. DOCETAXEL SAGENT [Suspect]
     Active Substance: DOCETAXEL
     Indication: BREAST CANCER FEMALE
     Dosage: NUMBER OF CYCLE ? 06, FREQUENCY ? EVERY THREE WEEKS
     Route: 042
     Dates: start: 20140306, end: 20140619
  2. FOLIC ACID. [Concomitant]
     Active Substance: FOLIC ACID

REACTIONS (6)
  - Madarosis [Not Recovered/Not Resolved]
  - Back pain [Recovered/Resolved]
  - Alopecia areata [Not Recovered/Not Resolved]
  - Alopecia totalis [Not Recovered/Not Resolved]
  - Hair texture abnormal [Not Recovered/Not Resolved]
  - Hair colour changes [Not Recovered/Not Resolved]

NARRATIVE: CASE EVENT DATE: 20140306
